FAERS Safety Report 19938079 (Version 1)
Quarter: 2021Q4

REPORT INFORMATION
  Report Type: Spontaneous
  Country: US (occurrence: US)
  Receive Date: 20211011
  Receipt Date: 20211011
  Transmission Date: 20220303
  Serious: No
  Sender: FDA-Public Use
  Company Number: US-ROCHE-2863954

PATIENT
  Sex: Male
  Weight: 105.78 kg

DRUGS (6)
  1. ZELBORAF [Suspect]
     Active Substance: VEMURAFENIB
     Indication: Hairy cell leukaemia
     Route: 048
     Dates: start: 20210415, end: 20210702
  2. RITUXAN [Suspect]
     Active Substance: RITUXIMAB
     Indication: Product used for unknown indication
     Route: 042
     Dates: start: 20210519
  3. ALLOPURINOL [Concomitant]
     Active Substance: ALLOPURINOL
     Route: 048
     Dates: start: 20210519
  4. CIPROFLOXACIN [Concomitant]
     Active Substance: CIPROFLOXACIN
     Route: 048
     Dates: start: 20210519
  5. ACYCLOVIR [Concomitant]
     Active Substance: ACYCLOVIR
     Route: 048
     Dates: start: 20210519
  6. FLUCONAZOLE [Concomitant]
     Active Substance: FLUCONAZOLE
     Route: 048
     Dates: start: 20210519

REACTIONS (2)
  - Off label use [Unknown]
  - No adverse event [Unknown]
